FAERS Safety Report 14060932 (Version 4)
Quarter: 2018Q1

REPORT INFORMATION
  Report Type: Report from Study
  Country: JP (occurrence: JP)
  Receive Date: 20171009
  Receipt Date: 20180307
  Transmission Date: 20180508
  Serious: Yes (Death, Hospitalization, Other)
  Sender: FDA-Public Use
  Company Number: JP-GILEAD-2017-0297105

PATIENT
  Age: 72 Year
  Sex: Female

DRUGS (22)
  1. BERAPROST SODIUM [Concomitant]
     Active Substance: BERAPROST SODIUM
     Dosage: UNK
  2. LUPRAC [Concomitant]
     Active Substance: TORSEMIDE
     Dosage: UNK
     Dates: end: 20170522
  3. TAKEPRON [Concomitant]
     Active Substance: LANSOPRAZOLE
     Dosage: UNK
     Dates: end: 20170522
  4. GASMOTIN [Concomitant]
     Active Substance: MOSAPRIDE CITRATE
     Dosage: UNK
     Dates: end: 20170522
  5. MIYA-BM [Concomitant]
     Active Substance: CLOSTRIDIUM BUTYRICUM SPORES STRAIN M-55
  6. SENNA [Concomitant]
     Active Substance: SENNA LEAF\SENNOSIDES\SENNOSIDES A AND B
  7. AMBRISENTAN [Suspect]
     Active Substance: AMBRISENTAN
     Dosage: 10 MG, QD
     Route: 048
     Dates: start: 20170420, end: 20170522
  8. BERAPROST SODIUM [Concomitant]
     Active Substance: BERAPROST SODIUM
     Dosage: UNK
  9. BERAPROST SODIUM [Concomitant]
     Active Substance: BERAPROST SODIUM
     Dosage: UNK
  10. METILDIGOXIN [Concomitant]
     Active Substance: METILDIGOXIN
     Dosage: UNK
     Dates: end: 20170522
  11. ETIZOLAM [Concomitant]
     Active Substance: ETIZOLAM
     Dosage: UNK
     Dates: end: 20170522
  12. AMBRISENTAN [Suspect]
     Active Substance: AMBRISENTAN
     Indication: PULMONARY ARTERIAL HYPERTENSION
     Dosage: 7.5 MG, QD
     Route: 048
     Dates: start: 20130416, end: 20170419
  13. WARFARIN [Concomitant]
     Active Substance: WARFARIN
     Indication: PULMONARY ARTERIAL HYPERTENSION
     Dosage: UNK
     Dates: end: 20170522
  14. BERAPROST SODIUM [Concomitant]
     Active Substance: BERAPROST SODIUM
     Dosage: UNK
  15. REVATIO [Concomitant]
     Active Substance: SILDENAFIL CITRATE
     Indication: PULMONARY ARTERIAL HYPERTENSION
     Dosage: UNK
     Dates: end: 20170522
  16. CARBOCISTEINE [Concomitant]
     Active Substance: CARBOCYSTEINE
     Dosage: UNK
     Dates: end: 20170522
  17. AMBRISENTAN [Suspect]
     Active Substance: AMBRISENTAN
     Indication: PULMONARY ARTERIAL HYPERTENSION
     Dosage: 5 MG, QD
     Route: 048
     Dates: start: 20130204, end: 20130415
  18. GASCON [Concomitant]
     Active Substance: DIMETHICONE
     Dosage: UNK
     Dates: end: 20170522
  19. DORNALIN [Concomitant]
     Active Substance: BERAPROST SODIUM
     Indication: PULMONARY ARTERIAL HYPERTENSION
     Dosage: UNK
     Dates: end: 20170402
  20. ALDACTONE A [Concomitant]
     Active Substance: SPIRONOLACTONE
     Dosage: UNK
     Dates: end: 20170522
  21. LASIX [Concomitant]
     Active Substance: FUROSEMIDE
     Indication: PULMONARY ARTERIAL HYPERTENSION
     Dosage: UNK
     Dates: end: 20170522
  22. CARELOAD [Concomitant]
     Active Substance: BERAPROST SODIUM
     Dosage: UNK

REACTIONS (9)
  - Off label use [Recovered/Resolved]
  - Hepatic function abnormal [Fatal]
  - Anaemia [Recovered/Resolved]
  - Fluid retention [Fatal]
  - Condition aggravated [Recovered/Resolved]
  - Abdominal distension [Recovered/Resolved]
  - Oedema [Recovered/Resolved]
  - Cardiac failure [Fatal]
  - Abdominal distension [Recovering/Resolving]

NARRATIVE: CASE EVENT DATE: 20130416
